FAERS Safety Report 4512050-5 (Version None)
Quarter: 2004Q4

REPORT INFORMATION
  Report Type: 
  Country: None (occurrence: None)
  Receive Date: 20041123
  Receipt Date: 20041112
  Transmission Date: 20050328
  Serious: No
  Sender: FDA-Public Use
  Company Number: 2004-122401-NL

PATIENT
  Age: 68 Year
  Sex: Male

DRUGS (7)
  1. REMERON [Suspect]
     Indication: DEPRESSION
     Dosage: 15 MG ONCE
  2. WELLBUTRIN [Suspect]
     Indication: DEPRESSION
     Dosage: 225 MG DAILY ORAL
     Route: 048
  3. WELLBUTRIN [Suspect]
     Indication: DEPRESSION
     Dosage: 300 MG DAILY ORAL
     Route: 048
  4. WELLBUTRIN [Suspect]
     Indication: DEPRESSION
     Dosage: 450 MG DAILY ORAL
     Route: 048
  5. WELLBUTRIN [Suspect]
     Indication: DEPRESSION
     Dosage: 300 MG DAILY ORAL
     Route: 048
  6. SERTRALINE HYDROCHLORIDE [Suspect]
     Indication: DEPRESSION
     Dosage: 50 MG DAILY
  7. CLONAZEPAM [Suspect]

REACTIONS (5)
  - ANXIETY [None]
  - BENIGN PROSTATIC HYPERPLASIA [None]
  - MAJOR DEPRESSION [None]
  - POLYURIA [None]
  - URINARY RETENTION [None]
